FAERS Safety Report 12623284 (Version 1)
Quarter: 2016Q3

REPORT INFORMATION
  Report Type: Spontaneous
  Country: FR (occurrence: FR)
  Receive Date: 20160804
  Receipt Date: 20160804
  Transmission Date: 20161109
  Serious: Yes (Death, Life-Threatening, Hospitalization, Other)
  Sender: FDA-Public Use
  Company Number: FR-ELI_LILLY_AND_COMPANY-FR201607012447

PATIENT
  Age: 52 Year
  Sex: Female

DRUGS (6)
  1. PACLITAXEL. [Suspect]
     Active Substance: PACLITAXEL
     Indication: DUCTAL ADENOCARCINOMA OF PANCREAS
     Dosage: UNK UNK, UNKNOWN
     Route: 042
     Dates: start: 20160711, end: 20160711
  2. COLCHICINE. [Concomitant]
     Active Substance: COLCHICINE
     Dosage: UNK, UNKNOWN
     Route: 065
  3. HUMALOG [Concomitant]
     Active Substance: INSULIN LISPRO
     Dosage: UNK, UNKNOWN
     Route: 065
  4. LANTUS [Concomitant]
     Active Substance: INSULIN GLARGINE
     Dosage: UNK, UNKNOWN
     Route: 065
  5. GEMZAR [Suspect]
     Active Substance: GEMCITABINE HYDROCHLORIDE
     Indication: DUCTAL ADENOCARCINOMA OF PANCREAS
     Dosage: UNK UNK, UNKNOWN
     Route: 042
     Dates: start: 201602, end: 20160613
  6. LERCANIDIPINE [Concomitant]
     Active Substance: LERCANIDIPINE
     Dosage: UNK, UNKNOWN
     Route: 065

REACTIONS (8)
  - Thrombotic microangiopathy [Unknown]
  - Aspartate aminotransferase increased [Unknown]
  - Posterior reversible encephalopathy syndrome [Fatal]
  - Gamma-glutamyltransferase increased [Unknown]
  - Petechiae [Unknown]
  - Anaphylactic reaction [Unknown]
  - Reversible cerebral vasoconstriction syndrome [Unknown]
  - Asthenia [Unknown]

NARRATIVE: CASE EVENT DATE: 20160711
